FAERS Safety Report 5568757-4 (Version None)
Quarter: 2007Q4

REPORT INFORMATION
  Report Type: 
  Country: None (occurrence: None)
  Receive Date: 20071220
  Receipt Date: 20070108
  Transmission Date: 20080405
  Serious: No
  Sender: FDA-Public Use
  Company Number: A0631808A

PATIENT
  Age: 88 Year
  Sex: Male
  Weight: 75.5 kg

DRUGS (9)
  1. AVODART [Suspect]
     Dosage: .5MG PER DAY
     Route: 048
     Dates: start: 20060401, end: 20061101
  2. COLCHICINE [Concomitant]
  3. ATENOLOL [Concomitant]
  4. K-DUR 10 [Concomitant]
  5. LASIX [Concomitant]
  6. CARDURA [Concomitant]
  7. ALTACE [Concomitant]
  8. VITAMIN B-12 [Concomitant]
  9. VITAMIN D [Concomitant]

REACTIONS (1)
  - LIP SWELLING [None]
